FAERS Safety Report 10102159 (Version 3)
Quarter: 2014Q2

REPORT INFORMATION
  Report Type: Spontaneous
  Country: JP (occurrence: JP)
  Receive Date: 20140424
  Receipt Date: 20140627
  Transmission Date: 20141212
  Serious: Yes (Other)
  Sender: FDA-Public Use
  Company Number: JP-JNJFOC-20140415839

PATIENT
  Age: 33 Year
  Sex: Male

DRUGS (12)
  1. REMICADE [Suspect]
     Indication: CROHN^S DISEASE
     Dosage: 15TH DOSE OF INFLIXIMAB. DURATION OF THERAPY WAS 3 DAYS
     Route: 042
     Dates: start: 20140124
  2. REMICADE [Suspect]
     Indication: CROHN^S DISEASE
     Dosage: FIRST DOSE
     Route: 042
     Dates: start: 20120808
  3. REMICADE [Suspect]
     Indication: CROHN^S DISEASE
     Route: 042
     Dates: start: 20130125
  4. REMICADE [Suspect]
     Indication: CROHN^S DISEASE
     Dosage: DURATION OF THERAPY WAS 3 DAYS.
     Route: 042
     Dates: start: 20140219
  5. REMICADE [Suspect]
     Indication: CROHN^S DISEASE
     Dosage: 14TH DOSE OF INFLIXIMAB. DURATION OF THERAPY WAS 1 DAY
     Route: 042
     Dates: start: 20131224, end: 20131224
  6. REMICADE [Suspect]
     Indication: CROHN^S DISEASE
     Dosage: DURATION OF THERAPY WAS 3 DAYS.
     Route: 042
     Dates: start: 20140320, end: 20140320
  7. REMICADE [Suspect]
     Indication: CROHN^S DISEASE
     Dosage: DURATION OF THERAPY WAS 3 DAYS.
     Route: 042
     Dates: start: 2014
  8. PARIET [Concomitant]
     Route: 048
     Dates: start: 20130917
  9. ELENTAL [Concomitant]
     Route: 048
     Dates: start: 20130402
  10. PENTASA [Concomitant]
     Route: 048
     Dates: start: 20120727
  11. MOBIC [Concomitant]
     Route: 048
     Dates: start: 20130917
  12. RABEPRAZOLE SODIUM [Concomitant]
     Route: 048
     Dates: start: 20140430

REACTIONS (2)
  - Systemic lupus erythematosus [Not Recovered/Not Resolved]
  - Pleural effusion [Recovered/Resolved]
